FAERS Safety Report 14770094 (Version 2)
Quarter: 2019Q1

REPORT INFORMATION
  Report Type: Spontaneous
  Country: PT (occurrence: PT)
  Receive Date: 20180417
  Receipt Date: 20190102
  Transmission Date: 20190417
  Serious: Yes (Hospitalization, Other)
  Sender: FDA-Public Use
  Company Number: PT-MYLANLABS-2018M1023455

PATIENT
  Age: 18 Year
  Sex: Female

DRUGS (2)
  1. DESOGESTREL/ETHINYL ESTRADIOL [Suspect]
     Active Substance: DESOGESTREL\ETHINYL ESTRADIOL
     Indication: PRODUCT USED FOR UNKNOWN INDICATION
     Dosage: DESOGESTREL 0.15 MG AND ETHINYLESTRADIOL 0.02 MG
     Route: 048
  2. FERROUS SULFATE. [Suspect]
     Active Substance: FERROUS SULFATE
     Indication: IRON DEFICIENCY ANAEMIA
     Dosage: 329.7 MG OF PROLONGED / SLOW RELEASE (IRON ELEMENTAL DOSAGE: 37.5 MG / KG)
     Route: 048

REACTIONS (12)
  - Heart rate increased [Recovered/Resolved]
  - Transferrin saturation increased [Recovered/Resolved]
  - Abdominal pain [Recovered/Resolved]
  - Anion gap increased [Recovered/Resolved]
  - Nausea [Recovered/Resolved]
  - Intentional overdose [Unknown]
  - Poisoning deliberate [Recovered/Resolved]
  - Vomiting [Recovered/Resolved]
  - Headache [Recovered/Resolved]
  - Transferrin increased [Recovered/Resolved]
  - Blood iron increased [Recovered/Resolved]
  - PCO2 increased [Recovered/Resolved]
